FAERS Safety Report 9831843 (Version 1)
Quarter: 2014Q1

REPORT INFORMATION
  Report Type: Report from Study
  Country: ES (occurrence: ES)
  Receive Date: 20140121
  Receipt Date: 20140121
  Transmission Date: 20141002
  Serious: Yes (Death)
  Sender: FDA-Public Use
  Company Number: ES-BEH-2014040129

PATIENT
  Sex: Male

DRUGS (6)
  1. RIASTAP OR PLACEBO [Suspect]
     Indication: HAEMORRHAGE
     Dosage: 2 UNITS/KITS
     Route: 042
     Dates: start: 20130307, end: 20130307
  2. RIASTAP OR PLACEBO [Suspect]
     Indication: LIVER TRANSPLANT
     Dosage: 2 UNITS/KITS
     Route: 042
     Dates: start: 20130307, end: 20130307
  3. MYCOPHENOLATE [Concomitant]
     Indication: IMMUNOSUPPRESSION
     Dates: start: 20130308, end: 20140112
  4. INSULIN [Concomitant]
     Indication: DIABETES MELLITUS
     Route: 058
     Dates: start: 20130308, end: 20140112
  5. CARVEDILOL [Concomitant]
     Indication: HYPERTENSION
     Dates: end: 20140112
  6. CYCLOSPORINE [Concomitant]
     Indication: IMMUNOSUPPRESSION
     Dates: start: 20130308, end: 20140112

REACTIONS (5)
  - Respiratory failure [Fatal]
  - Hepatitis C [Fatal]
  - Renal failure acute [Fatal]
  - Lung infection [Fatal]
  - Graft complication [Fatal]
